FAERS Safety Report 7496959-9 (Version None)
Quarter: 2011Q2

REPORT INFORMATION
  Report Type: 
  Country: None (occurrence: None)
  Receive Date: 20110523
  Receipt Date: 20110512
  Transmission Date: 20111010
  Serious: Yes (Other)
  Sender: FDA-Public Use
  Company Number: JP-JNJFOC-20110408844

PATIENT
  Age: 85 Year
  Sex: Female

DRUGS (1)
  1. GALANTAMINE HYDROBROMIDE [Suspect]
     Indication: DEMENTIA
     Route: 048
     Dates: start: 20110412, end: 20110413

REACTIONS (7)
  - INCORRECT DOSE ADMINISTERED [None]
  - DIARRHOEA [None]
  - HEADACHE [None]
  - MUSCLE SPASMS [None]
  - DIZZINESS [None]
  - DECREASED APPETITE [None]
  - NAUSEA [None]
